FAERS Safety Report 13682286 (Version 1)
Quarter: 2017Q2

REPORT INFORMATION
  Report Type: Spontaneous
  Country: CA (occurrence: CA)
  Receive Date: 20170623
  Receipt Date: 20170623
  Transmission Date: 20170830
  Serious: Yes (Disabling)
  Sender: FDA-Public Use
  Company Number: CA-TEVA-780886ACC

PATIENT
  Age: 16 Year
  Sex: Male

DRUGS (3)
  1. DEXAMETHASONE. [Suspect]
     Active Substance: DEXAMETHASONE
     Indication: DENTAL DISCOMFORT
     Route: 048
  2. KETOROLAC [Suspect]
     Active Substance: KETOROLAC\KETOROLAC TROMETHAMINE
     Indication: DENTAL DISCOMFORT
     Dosage: 40 MILLIGRAM DAILY;
     Route: 048
  3. TYLENOL WITH CODEINE [Concomitant]
     Active Substance: ACETAMINOPHEN\CODEINE PHOSPHATE
     Route: 048

REACTIONS (7)
  - Feeling jittery [Unknown]
  - Hypoaesthesia [Unknown]
  - Incorrect dose administered [Unknown]
  - Peripheral coldness [Unknown]
  - Anxiety [Unknown]
  - Paraesthesia [Unknown]
  - Limb discomfort [Unknown]
